FAERS Safety Report 8121279-9 (Version None)
Quarter: 2012Q1

REPORT INFORMATION
  Report Type: 
  Country: None (occurrence: None)
  Receive Date: 20120208
  Receipt Date: 20120201
  Transmission Date: 20120608
  Serious: Yes (Death)
  Sender: FDA-Public Use
  Company Number: US-CELGENEUS-163-21880-11110631

PATIENT
  Sex: Male
  Weight: 172.52 kg

DRUGS (19)
  1. LOVENOX [Concomitant]
     Dosage: 40 MG/0.4 ML
     Route: 065
     Dates: start: 20110901
  2. COUMADIN [Concomitant]
     Dosage: 5 MILLIGRAM
     Route: 065
  3. ALLOPURINOL [Concomitant]
     Route: 065
  4. DEMADEX [Concomitant]
     Route: 065
  5. NORCO [Concomitant]
     Route: 065
  6. FLOMAX [Concomitant]
     Route: 065
  7. REVLIMID [Suspect]
     Indication: MULTIPLE MYELOMA
     Dosage: 15 MILLIGRAM
     Route: 048
     Dates: start: 20111005, end: 20111017
  8. TAMSULOSIN ER [Concomitant]
     Dosage: .4 MILLIGRAM
     Route: 065
  9. GLIMEPIRIDE [Concomitant]
     Route: 065
  10. DEXAMETHASONE [Concomitant]
     Dosage: 4 MILLIGRAM
     Route: 065
  11. WARFARIN SODIUM [Concomitant]
     Route: 065
  12. WELLBUTRIN [Concomitant]
     Route: 065
  13. VALACYCLOVIR [Concomitant]
     Dosage: 500 MILLIGRAM
     Route: 065
  14. VELCADE [Concomitant]
     Dosage: 2 MILLIGRAM
     Route: 065
     Dates: start: 20110914, end: 20111012
  15. ONGLYZA [Concomitant]
     Route: 065
  16. TORSEMIDE [Concomitant]
     Dosage: 20 MILLIGRAM
     Route: 065
  17. PROTONIX [Concomitant]
     Dosage: 40 MILLIGRAM
     Route: 065
  18. MORPHINE [Concomitant]
     Dosage: 15 MILLIGRAM
     Route: 065
  19. INSULIN [Concomitant]
     Route: 065

REACTIONS (1)
  - PNEUMONITIS [None]
